FAERS Safety Report 17798737 (Version 1)
Quarter: 2020Q2

REPORT INFORMATION
  Report Type: Spontaneous
  Country: KR (occurrence: KR)
  Receive Date: 20200518
  Receipt Date: 20200518
  Transmission Date: 20200714
  Serious: Yes (Other)
  Sender: FDA-Public Use
  Company Number: KR-PFIZER INC-2020194417

PATIENT

DRUGS (1)
  1. SUTENE [Suspect]
     Active Substance: SUNITINIB MALATE
     Route: 048

REACTIONS (2)
  - Blood cholesterol increased [Unknown]
  - Hypertension [Unknown]
